FAERS Safety Report 21322404 (Version 1)
Quarter: 2022Q3

REPORT INFORMATION
  Report Type: Report from Study
  Country: US (occurrence: US)
  Receive Date: 20220912
  Receipt Date: 20220912
  Transmission Date: 20221027
  Serious: Yes (Other)
  Sender: FDA-Public Use
  Company Number: US-NOVARTISPH-NVSC2022US202368

PATIENT
  Age: 46 Year
  Sex: Female

DRUGS (2)
  1. GILENYA [Suspect]
     Active Substance: FINGOLIMOD HYDROCHLORIDE
     Indication: Multiple sclerosis
     Dosage: 0.5 MG, QD
     Route: 048
  2. ABX [Concomitant]
     Indication: Product used for unknown indication
     Dosage: UNK, (FOR 10 DAYS)
     Route: 048

REACTIONS (4)
  - Nephrolithiasis [Unknown]
  - Renal pain [Unknown]
  - Kidney infection [Unknown]
  - Amnesia [Unknown]

NARRATIVE: CASE EVENT DATE: 20220902
